FAERS Safety Report 6755958-2 (Version None)
Quarter: 2010Q2

REPORT INFORMATION
  Report Type: 
  Country: None (occurrence: None)
  Receive Date: 20100604
  Receipt Date: 20100525
  Transmission Date: 20101027
  Serious: Yes (Hospitalization)
  Sender: FDA-Public Use
  Company Number: PHEH2010US02961

PATIENT
  Sex: Female
  Weight: 70 kg

DRUGS (1)
  1. EXJADE [Suspect]
     Indication: SICKLE CELL ANAEMIA
     Dosage: 2000 MG, DAILY
     Route: 048
     Dates: start: 20091009

REACTIONS (3)
  - HYPERSENSITIVITY [None]
  - PNEUMONIA [None]
  - PRURITUS [None]
